FAERS Safety Report 17181005 (Version 3)
Quarter: 2020Q1

REPORT INFORMATION
  Report Type: Report from Study
  Country: US (occurrence: US)
  Receive Date: 20191220
  Receipt Date: 20200208
  Transmission Date: 20200409
  Serious: No
  Sender: FDA-Public Use
  Company Number: US-BEH-2019110905

PATIENT
  Age: 18 Year
  Sex: Female

DRUGS (2)
  1. BERINERT [Suspect]
     Active Substance: HUMAN C1-ESTERASE INHIBITOR
     Indication: HEREDITARY ANGIOEDEMA
     Dosage: 3120, BIW
     Route: 058
     Dates: start: 20191126
  2. BERINERT [Suspect]
     Active Substance: HUMAN C1-ESTERASE INHIBITOR
     Indication: PROPHYLAXIS
     Dosage: 6240, BIW
     Route: 058
     Dates: start: 20191126

REACTIONS (3)
  - Product preparation issue [Unknown]
  - Device issue [Unknown]
  - No adverse event [Unknown]
